FAERS Safety Report 10190433 (Version 2)
Quarter: 2014Q2

REPORT INFORMATION
  Report Type: Spontaneous
  Country: US (occurrence: US)
  Receive Date: 20140522
  Receipt Date: 20140605
  Transmission Date: 20141212
  Serious: No
  Sender: FDA-Public Use
  Company Number: US-009507513-1404USA015181

PATIENT
  Age: 52 Year
  Sex: Female
  Weight: 63.49 kg

DRUGS (4)
  1. OXYTROL FOR WOMEN [Suspect]
     Indication: HYPERTONIC BLADDER
     Dosage: ONLY ONCE FOR 4 DAYS
     Route: 062
     Dates: start: 20140418, end: 20140422
  2. SYNTHROID [Concomitant]
     Indication: HYPOTHYROIDISM
  3. ZETIA [Concomitant]
     Indication: HYPERLIPIDAEMIA
  4. VESICARE [Concomitant]
     Indication: HYPERTONIC BLADDER

REACTIONS (5)
  - Application site rash [Recovered/Resolved]
  - Application site pain [Recovered/Resolved]
  - Application site erythema [Recovered/Resolved]
  - Application site pruritus [Recovered/Resolved]
  - Drug effect decreased [Unknown]
